FAERS Safety Report 5454663-2 (Version None)
Quarter: 2007Q3

REPORT INFORMATION
  Report Type: 
  Country: None (occurrence: None)
  Receive Date: 20070917
  Receipt Date: 20060821
  Transmission Date: 20080115
  Serious: Yes (Other)
  Sender: FDA-Public Use
  Company Number: US-ASTRAZENECA-2006UW16545

PATIENT
  Age: 63 Year
  Sex: Female
  Weight: 54.4 kg

DRUGS (5)
  1. SEROQUEL [Suspect]
     Indication: SELF MUTILATION
     Route: 048
     Dates: start: 20060801
  2. ARICEPT [Concomitant]
  3. DEPAKOTE [Concomitant]
  4. CALCIUM [Concomitant]
  5. DOCUSATE [Concomitant]

REACTIONS (1)
  - CONVULSION [None]
